FAERS Safety Report 9846504 (Version 1)
Quarter: 2014Q1

REPORT INFORMATION
  Report Type: Spontaneous
  Country: US (occurrence: None)
  Receive Date: 20140123
  Receipt Date: 20140123
  Transmission Date: 20141002
  Serious: Yes (Hospitalization)
  Sender: FDA-Public Use
  Company Number: None

PATIENT
  Age: 27 Year
  Sex: Female
  Weight: 49.9 kg

DRUGS (1)
  1. LAMOTRIGINE [Suspect]
     Indication: MOOD SWINGS
     Dosage: 1 PILL  THREE TIMES DAILY  TAKEN BY MOUTH
     Route: 048
     Dates: start: 20131023, end: 20131113

REACTIONS (2)
  - Muscle spasms [None]
  - Stevens-Johnson syndrome [None]
